FAERS Safety Report 5221374-8 (Version None)
Quarter: 2007Q1

REPORT INFORMATION
  Report Type: 
  Country: None (occurrence: None)
  Receive Date: 20070126
  Receipt Date: 20070115
  Transmission Date: 20070707
  Serious: Yes (Other)
  Sender: FDA-Public Use
  Company Number: US-PFIZER INC-2007004519

PATIENT
  Sex: Female

DRUGS (4)
  1. CHANTIX [Suspect]
     Indication: SMOKING CESSATION THERAPY
  2. CLOPIDOGREL [Suspect]
     Indication: CORONARY ARTERY DISEASE
  3. PLAVIX [Suspect]
     Indication: CORONARY ARTERY DISEASE
     Dates: start: 20060501
  4. TORSEMIDE [Concomitant]

REACTIONS (6)
  - ABNORMAL DREAMS [None]
  - CHEST PAIN [None]
  - DRUG INEFFECTIVE [None]
  - DYSPNOEA [None]
  - NAUSEA [None]
  - STENT OCCLUSION [None]
